FAERS Safety Report 5339303-5 (Version None)
Quarter: 2007Q2

REPORT INFORMATION
  Report Type: 
  Country: None (occurrence: None)
  Receive Date: 20070530
  Receipt Date: 20070525
  Transmission Date: 20071010
  Serious: Yes (Life-Threatening)
  Sender: FDA-Public Use
  Company Number: AU-MERCK-0705AUS00174

PATIENT
  Age: 79 Year
  Sex: Female

DRUGS (7)
  1. SINGULAIR [Suspect]
     Route: 048
     Dates: start: 20070523, end: 20070524
  2. PREXIGE [Suspect]
     Route: 048
     Dates: start: 20070523
  3. CALCITRIOL [Concomitant]
     Route: 065
  4. CORTICOSTEROIDS (UNSPECIFIED) [Concomitant]
     Route: 065
  5. CICLESONIDE [Concomitant]
     Route: 065
  6. VENTOLIN [Concomitant]
     Route: 065
  7. ATROVENT [Concomitant]
     Route: 065

REACTIONS (3)
  - ADVERSE EVENT [None]
  - ANAPHYLACTIC REACTION [None]
  - DRUG INTERACTION [None]
